FAERS Safety Report 5795011-8 (Version None)
Quarter: 2008Q2

REPORT INFORMATION
  Report Type: 
  Country: None (occurrence: None)
  Receive Date: 20080630
  Receipt Date: 20080229
  Transmission Date: 20081010
  Serious: No
  Sender: FDA-Public Use
  Company Number: US-BRISTOL-MYERS SQUIBB COMPANY-14096804

PATIENT
  Age: 70 Year
  Sex: Female

DRUGS (4)
  1. ORENCIA [Suspect]
     Indication: RHEUMATOID ARTHRITIS
     Dosage: THERAPY DATES- 08FEB08 AND 22FEB08.
     Route: 042
     Dates: start: 20080208, end: 20080222
  2. METHOTREXATE [Concomitant]
  3. TRAZODONE HCL [Concomitant]
  4. TRAMADOL HCL [Concomitant]

REACTIONS (3)
  - DYSARTHRIA [None]
  - FATIGUE [None]
  - RHEUMATOID ARTHRITIS [None]
